FAERS Safety Report 10751165 (Version 1)
Quarter: 2015Q1

REPORT INFORMATION
  Report Type: Spontaneous
  Country: US (occurrence: None)
  Receive Date: 20150129
  Receipt Date: 20150129
  Transmission Date: 20150721
  Serious: No
  Sender: FDA-Public Use
  Company Number: None

PATIENT
  Age: 64 Year
  Sex: Female

DRUGS (1)
  1. HARVONI [Suspect]
     Active Substance: LEDIPASVIR\SOFOSBUVIR
     Indication: HEPATITIS C
     Dosage: 90/400MG (1 TABLET) ONCE DAILY BY MOUTH
     Route: 048
     Dates: start: 20141126

REACTIONS (3)
  - Ear disorder [None]
  - Tinnitus [None]
  - Constipation [None]

NARRATIVE: CASE EVENT DATE: 20150127
